FAERS Safety Report 7823965-4 (Version None)
Quarter: 2011Q4

REPORT INFORMATION
  Report Type: 
  Country: None (occurrence: None)
  Receive Date: 20111019
  Receipt Date: 20111010
  Transmission Date: 20120403
  Serious: Yes (Other)
  Sender: FDA-Public Use
  Company Number: US-JNJFOC-20111004644

PATIENT
  Sex: Male
  Weight: 86.18 kg

DRUGS (3)
  1. INVEGA SUSTENNA [Suspect]
     Indication: SCHIZOAFFECTIVE DISORDER
     Route: 030
  2. ADDERALL 5 [Concomitant]
     Indication: ATTENTION DEFICIT/HYPERACTIVITY DISORDER
     Route: 048
     Dates: start: 20060101
  3. KLONOPIN [Concomitant]
     Indication: POST-TRAUMATIC STRESS DISORDER
     Route: 048
     Dates: start: 20100101

REACTIONS (6)
  - NEUROLEPTIC MALIGNANT SYNDROME [None]
  - SCIATICA [None]
  - NERVE COMPRESSION [None]
  - HALLUCINATION [None]
  - CARDIOVASCULAR DISORDER [None]
  - MUSCLE RIGIDITY [None]
